FAERS Safety Report 7012946-9 (Version None)
Quarter: 2010Q3

REPORT INFORMATION
  Report Type: 
  Country: None (occurrence: None)
  Receive Date: 20100915
  Receipt Date: 20100106
  Transmission Date: 20110219
  Serious: Yes (Other)
  Sender: FDA-Public Use
  Company Number: US-WYE-H12868910

PATIENT
  Age: 86 Year
  Sex: Female
  Weight: 52.21 kg

DRUGS (3)
  1. ADVIL [Suspect]
     Indication: ARTHRITIS
     Dosage: 1 CAPSULE 1X PER 1 DAY, ORAL
     Route: 048
     Dates: start: 20100105, end: 20100105
  2. ADVIL [Suspect]
     Indication: PAIN
     Dosage: 1 CAPSULE 1X PER 1 DAY, ORAL
     Route: 048
     Dates: start: 20100105, end: 20100105
  3. SYNTHROID [Concomitant]

REACTIONS (2)
  - GLOSSODYNIA [None]
  - THROAT IRRITATION [None]
